FAERS Safety Report 25943406 (Version 1)
Quarter: 2025Q4

REPORT INFORMATION
  Report Type: Spontaneous
  Country: CH (occurrence: CH)
  Receive Date: 20251021
  Receipt Date: 20251021
  Transmission Date: 20260117
  Serious: Yes (Other)
  Sender: AMERICAN REGENT
  Company Number: CH-AMERICAN REGENT INC-2025003809

PATIENT
  Age: 69 Year
  Sex: Female
  Weight: 56 kg

DRUGS (3)
  1. FERINJECT [Suspect]
     Active Substance: FERRIC CARBOXYMALTOSE
     Indication: Hypoferritinaemia
     Dosage: 5 MG, TOT, IN 20 SECONDS (TOTAL)PLANNED: 50 MG IN 20 ML NACL 0.9% TO BE INFUSED IN 2 TO 5 MINUTES TH
     Route: 042
     Dates: start: 20250313, end: 20250313
  2. FERINJECT [Suspect]
     Active Substance: FERRIC CARBOXYMALTOSE
     Dosage: 333 MG TOT, PLANNED: 500MG IN 100 ML NACL 0.9% TO BE INFUSED IN 6 MINUTES
     Route: 042
     Dates: start: 20250715, end: 20250715
  3. FERRIC DERISOMALTOSE [Suspect]
     Active Substance: FERRIC DERISOMALTOSE
     Indication: Hypoferritinaemia
     Dosage: AS MONOFER: 133 MILLIGRAM, TOT, PLANNED: 500MG IN 500 ML NACL 0.9% TO BE INFUSED IN 15 MINUTES
     Route: 042

REACTIONS (8)
  - Feeling hot [Recovered/Resolved]
  - Fishbane reaction [Recovered/Resolved]
  - Fishbane reaction [Recovered/Resolved]
  - Fishbane reaction [Recovered/Resolved]
  - Back pain [Recovered/Resolved]
  - Back pain [Recovered/Resolved]
  - Back pain [Recovered/Resolved]
  - Gait inability [Recovered/Resolved]

NARRATIVE: CASE EVENT DATE: 20250313
